FAERS Safety Report 19452006 (Version 2)
Quarter: 2021Q3

REPORT INFORMATION
  Report Type: Spontaneous
  Country: US (occurrence: US)
  Receive Date: 20210623
  Receipt Date: 20210817
  Transmission Date: 20211014
  Serious: Yes (Other)
  Sender: FDA-Public Use
  Company Number: US-JNJFOC-20210635139

PATIENT
  Age: 59 Year
  Sex: Female

DRUGS (4)
  1. ELMIRON [Suspect]
     Active Substance: PENTOSAN POLYSULFATE SODIUM
     Indication: CYSTITIS INTERSTITIAL
     Route: 048
     Dates: start: 20050101, end: 20110101
  2. NORCO [Concomitant]
     Active Substance: ACETAMINOPHEN\HYDROCODONE BITARTRATE
     Indication: PAIN
     Dates: start: 200801, end: 202012
  3. SOMA [CAFFEINE;CHLORZOXAZONE;PARACETAMOL;THIAMINE DISULFIDE] [Concomitant]
     Indication: PAIN
     Dates: start: 200801, end: 201612
  4. ELMIRON [Suspect]
     Active Substance: PENTOSAN POLYSULFATE SODIUM
     Route: 048
     Dates: start: 20110102, end: 20140829

REACTIONS (2)
  - Maculopathy [Unknown]
  - Retinal pigmentation [Unknown]

NARRATIVE: CASE EVENT DATE: 20210318
